FAERS Safety Report 25749410 (Version 1)
Quarter: 2025Q3

REPORT INFORMATION
  Report Type: Spontaneous
  Country: AU (occurrence: AU)
  Receive Date: 20250902
  Receipt Date: 20250902
  Transmission Date: 20251021
  Serious: Yes (Other)
  Sender: CSL BEHRING
  Company Number: AU-BEH-2025216900

PATIENT
  Age: 44 Year
  Sex: Female

DRUGS (9)
  1. HUMAN IMMUNOGLOBULIN G [Suspect]
     Active Substance: HUMAN IMMUNOGLOBULIN G
     Indication: Ulcer
     Route: 042
  2. USTEKINUMAB [Suspect]
     Active Substance: USTEKINUMAB
     Indication: Ulcer
     Route: 065
  3. PREDNISOLONE [Suspect]
     Active Substance: PREDNISOLONE
     Indication: Ulcer
     Dosage: 50 MG, QD
     Route: 065
  4. MYCOPHENOLIC ACID [Suspect]
     Active Substance: MYCOPHENOLIC ACID
     Indication: Ulcer
     Dosage: 1.5 MG (INTERVAL: 12 HOUR)
     Route: 065
  5. METHYLPREDNISOLONE [Suspect]
     Active Substance: METHYLPREDNISOLONE
     Indication: Ulcer
     Dosage: 500 MG, QD
     Route: 042
  6. METHOTREXATE [Suspect]
     Active Substance: METHOTREXATE
     Indication: Ulcer
     Dosage: 10 MG, QD
     Route: 065
  7. INFLIXIMAB [Suspect]
     Active Substance: INFLIXIMAB
     Indication: Ulcer
     Dosage: 625 MG, QMT
     Route: 065
  8. CYCLOSPORINE [Suspect]
     Active Substance: CYCLOSPORINE
     Indication: Ulcer
     Dosage: 3 MG/KG, QD (DIVIDED INTO 2 DOSES)
     Route: 065
  9. ADALIMUMAB [Suspect]
     Active Substance: ADALIMUMAB
     Indication: Ulcer
     Dosage: 40 MG, QD
     Route: 065

REACTIONS (3)
  - Drug ineffective [Unknown]
  - Disease progression [Unknown]
  - Product use in unapproved indication [Unknown]
